FAERS Safety Report 8616028-1 (Version None)
Quarter: 2012Q3

REPORT INFORMATION
  Report Type: 
  Country: None (occurrence: None)
  Receive Date: 20120823
  Receipt Date: 20120817
  Transmission Date: 20120928
  Serious: No
  Sender: FDA-Public Use
  Company Number: US-PFIZER INC-2012203543

PATIENT
  Age: 59 Year
  Sex: Female
  Weight: 83.9 kg

DRUGS (4)
  1. SUTENT [Suspect]
     Indication: METASTATIC RENAL CELL CARCINOMA
     Dosage: 50 MG, DAILY
  2. LOSARTAN [Concomitant]
     Dosage: 100 MG, DAILY
  3. LISINOPRIL [Concomitant]
     Dosage: 40 MG, DAILY
  4. AMLODIPINE [Concomitant]
     Dosage: 5 MG, DAILY

REACTIONS (3)
  - PRURITUS [None]
  - NAUSEA [None]
  - DIZZINESS [None]
